FAERS Safety Report 6731287-8 (Version None)
Quarter: 2010Q2

REPORT INFORMATION
  Report Type: 
  Country: None (occurrence: None)
  Receive Date: 20100517
  Receipt Date: 20100517
  Transmission Date: 20101027
  Serious: Yes (Life-Threatening)
  Sender: FDA-Public Use
  Company Number: None

PATIENT
  Sex: Female
  Weight: 97.5234 kg

DRUGS (1)
  1. LAMOTRIGINE [Suspect]
     Indication: BIPOLAR DISORDER
     Dosage: 1 TABLET TWICE DAILY PO
     Route: 048
     Dates: start: 20100319, end: 20100516

REACTIONS (2)
  - PRODUCT SUBSTITUTION ISSUE [None]
  - SUICIDAL BEHAVIOUR [None]
